FAERS Safety Report 4598037-5 (Version None)
Quarter: 2005Q2

REPORT INFORMATION
  Report Type: 
  Country: None (occurrence: None)
  Receive Date: 20050207
  Receipt Date: 20040330
  Transmission Date: 20051028
  Serious: Yes (Hospitalization)
  Sender: FDA-Public Use
  Company Number: MEDI-0001645

PATIENT
  Sex: Female

DRUGS (10)
  1. ETHYOL [Suspect]
     Indication: CHEMOTHERAPY
     Dosage: 500 MG, SUBCUTANEOUS
     Route: 058
     Dates: start: 20040303, end: 20040315
  2. ETHYOL [Suspect]
     Indication: RADIOTHERAPY
     Dosage: 500 MG, SUBCUTANEOUS
     Route: 058
     Dates: start: 20040303, end: 20040315
  3. ETHYOL [Suspect]
     Indication: CHEMOTHERAPY
     Dosage: 500 MG, SUBCUTANEOUS
     Route: 058
     Dates: start: 20040318
  4. ETHYOL [Suspect]
     Indication: RADIOTHERAPY
     Dosage: 500 MG, SUBCUTANEOUS
     Route: 058
     Dates: start: 20040318
  5. CISPLATIN [Concomitant]
  6. RADIATION THERAPY [Concomitant]
  7. DECADRON [Concomitant]
  8. ZANTAC [Concomitant]
  9. KYTRIL [Concomitant]
  10. LASIX [Concomitant]

REACTIONS (3)
  - CHILLS [None]
  - PYREXIA [None]
  - RASH [None]
